FAERS Safety Report 23870580 (Version 2)
Quarter: 2024Q2

REPORT INFORMATION
  Report Type: Spontaneous
  Country: UA (occurrence: UA)
  Receive Date: 20240518
  Receipt Date: 20240610
  Transmission Date: 20240716
  Serious: Yes (Other)
  Sender: FDA-Public Use
  Company Number: UA-TEVA-VS-3197471

PATIENT
  Age: 54 Year
  Sex: Male

DRUGS (2)
  1. OSELTAMIVIR [Suspect]
     Active Substance: OSELTAMIVIR
     Indication: Influenza
     Dosage: FOR 5 DAYS
     Route: 065
  2. ACETAMINOPHEN [Suspect]
     Active Substance: ACETAMINOPHEN
     Indication: Influenza
     Dosage: FOR 8 DAYS
     Route: 065

REACTIONS (3)
  - Arrhythmia [Unknown]
  - Angina pectoris [Unknown]
  - Blood pressure measurement [Recovering/Resolving]
